FAERS Safety Report 4429651-5 (Version None)
Quarter: 2004Q3

REPORT INFORMATION
  Report Type: 
  Country: None (occurrence: None)
  Receive Date: 20040819
  Receipt Date: 20040816
  Transmission Date: 20050211
  Serious: Yes (Disabling)
  Sender: FDA-Public Use
  Company Number: US-MERCK-0408USA01278

PATIENT
  Age: 65 Year
  Sex: Female

DRUGS (4)
  1. ZEBETA [Concomitant]
     Route: 065
  2. ATACAND [Concomitant]
     Route: 065
  3. ZETIA [Suspect]
     Indication: BLOOD CHOLESTEROL INCREASED
     Route: 048
     Dates: start: 20040810, end: 20040811
  4. SYNTHROID [Concomitant]
     Route: 065

REACTIONS (5)
  - BALANCE DISORDER [None]
  - FEELING ABNORMAL [None]
  - ORAL DISCOMFORT [None]
  - SENSATION OF FOREIGN BODY [None]
  - THROAT IRRITATION [None]
